FAERS Safety Report 5686889-7 (Version None)
Quarter: 2008Q1

REPORT INFORMATION
  Report Type: 
  Country: None (occurrence: None)
  Receive Date: 20080328
  Receipt Date: 20070525
  Transmission Date: 20080703
  Serious: No
  Sender: FDA-Public Use
  Company Number: US-BAYER-US-2007-019503

PATIENT
  Age: 31 Year
  Sex: Female

DRUGS (3)
  1. MIRENA [Suspect]
     Indication: CONTRACEPTION
     Route: 015
     Dates: start: 20070517
  2. EXCEDRIN [Concomitant]
  3. ORAL CONTRACEPTIVE NOS [Concomitant]

REACTIONS (4)
  - CHILLS [None]
  - INFECTION [None]
  - PELVIC PAIN [None]
  - PYREXIA [None]
